FAERS Safety Report 8287274-4 (Version None)
Quarter: 2012Q2

REPORT INFORMATION
  Report Type: 
  Country: None (occurrence: None)
  Receive Date: 20120416
  Receipt Date: 20120416
  Transmission Date: 20120825
  Serious: Yes (Hospitalization)
  Sender: FDA-Public Use
  Company Number: None

PATIENT
  Age: 40 Year
  Sex: Female
  Weight: 67.131 kg

DRUGS (1)
  1. MORPHINE SULFATE [Suspect]
     Indication: CHEST PAIN
     Dosage: 2 MG
     Route: 042

REACTIONS (2)
  - URTICARIA [None]
  - DRUG HYPERSENSITIVITY [None]
